FAERS Safety Report 18568950 (Version 1)
Quarter: 2020Q4

REPORT INFORMATION
  Report Type: Spontaneous
  Country: US (occurrence: US)
  Receive Date: 20201201
  Receipt Date: 20201201
  Transmission Date: 20210114
  Serious: No
  Sender: FDA-Public Use
  Company Number: None

PATIENT
  Age: 71 Year
  Sex: Male
  Weight: 118.8 kg

DRUGS (22)
  1. LINZESS [Concomitant]
     Active Substance: LINACLOTIDE
  2. MONTELUKAST SODIUM. [Concomitant]
     Active Substance: MONTELUKAST SODIUM
  3. LUPRON DEPOT (3-MONTH) [Concomitant]
  4. CALCIUM 600 [Concomitant]
     Active Substance: CALCIUM
  5. SIMVASTATIN. [Concomitant]
     Active Substance: SIMVASTATIN
  6. EZETIMIBE. [Concomitant]
     Active Substance: EZETIMIBE
  7. ABIRATERONE. [Suspect]
     Active Substance: ABIRATERONE ACETATE
     Indication: BONE CANCER
     Route: 048
     Dates: start: 20201102
  8. OLMESARTAN MEDOXOMIL. [Concomitant]
     Active Substance: OLMESARTAN MEDOXOMIL
  9. HYDROCODONE-ACETAMINOPHEN [Concomitant]
     Active Substance: ACETAMINOPHEN\HYDROCODONE
  10. FUROSEMIDE. [Concomitant]
     Active Substance: FUROSEMIDE
  11. ASPIRIN 81 [Concomitant]
     Active Substance: ASPIRIN
  12. HYDROCHLOROTHIAZIDE. [Concomitant]
     Active Substance: HYDROCHLOROTHIAZIDE
  13. MUCINEX D [Concomitant]
     Active Substance: GUAIFENESIN\PSEUDOEPHEDRINE HYDROCHLORIDE
  14. HYDROMORPHONE HCL [Concomitant]
     Active Substance: HYDROMORPHONE HYDROCHLORIDE
  15. ALLOPURINOL. [Concomitant]
     Active Substance: ALLOPURINOL
  16. MULTI COMPLETE [Concomitant]
  17. ESOMEPRAZOLE MAGNESIUM. [Concomitant]
     Active Substance: ESOMEPRAZOLE MAGNESIUM
  18. MSM [Concomitant]
     Active Substance: DIMETHYL SULFONE
  19. NYSTATIN. [Concomitant]
     Active Substance: NYSTATIN
  20. LUPRON DEPOT (1-MONTH) [Concomitant]
  21. PREGABALIN. [Concomitant]
     Active Substance: PREGABALIN
  22. FENTANYL. [Concomitant]
     Active Substance: FENTANYL

REACTIONS (3)
  - Productive cough [None]
  - Dyspnoea [None]
  - Fluid retention [None]

NARRATIVE: CASE EVENT DATE: 20201201
